FAERS Safety Report 4686381-2 (Version None)
Quarter: 2005Q2

REPORT INFORMATION
  Report Type: 
  Country: None (occurrence: None)
  Receive Date: 20050606
  Receipt Date: 20050520
  Transmission Date: 20051028
  Serious: Yes (Other)
  Sender: FDA-Public Use
  Company Number: JP_050506614

PATIENT
  Age: 77 Year
  Sex: Male

DRUGS (1)
  1. GEMZAR [Suspect]
     Indication: NON-SMALL CELL LUNG CANCER STAGE IV
     Dosage: 1000 MG OTHER
     Dates: start: 20050518

REACTIONS (1)
  - CHEST PAIN [None]
